FAERS Safety Report 7225497-3 (Version None)
Quarter: 2011Q1

REPORT INFORMATION
  Report Type: 
  Country: None (occurrence: None)
  Receive Date: 20110113
  Receipt Date: 20110110
  Transmission Date: 20110831
  Serious: Yes (Death)
  Sender: FDA-Public Use
  Company Number: TW-MERCK-1101USA00850

PATIENT
  Age: 76 Year
  Sex: Male
  Weight: 64 kg

DRUGS (1)
  1. FOSAMAX PLUS D [Suspect]
     Indication: OSTEOPOROSIS
     Route: 048
     Dates: start: 20091120, end: 20101115

REACTIONS (4)
  - SEPSIS [None]
  - ACUTE RESPIRATORY FAILURE [None]
  - PANCREATITIS ACUTE [None]
  - RENAL FAILURE ACUTE [None]
